FAERS Safety Report 17688332 (Version 4)
Quarter: 2020Q2

REPORT INFORMATION
  Report Type: Spontaneous
  Country: BE (occurrence: BE)
  Receive Date: 20200421
  Receipt Date: 20200626
  Transmission Date: 20200714
  Serious: Yes (Hospitalization)
  Sender: FDA-Public Use
  Company Number: BE-BIOGEN-2020BI00864908

PATIENT
  Age: 40 Year
  Sex: Male

DRUGS (3)
  1. TYSABRI [Suspect]
     Active Substance: NATALIZUMAB
     Route: 065
     Dates: start: 20180823
  2. TYSABRI [Suspect]
     Active Substance: NATALIZUMAB
     Route: 065
     Dates: end: 20161223
  3. TYSABRI [Suspect]
     Active Substance: NATALIZUMAB
     Indication: RELAPSING-REMITTING MULTIPLE SCLEROSIS
     Route: 065
     Dates: start: 200802

REACTIONS (15)
  - Amnesia [Unknown]
  - Confusional state [Unknown]
  - Streptococcal abscess [Recovered/Resolved]
  - Obstructive airways disorder [Unknown]
  - Partial seizures [Recovered/Resolved]
  - Dizziness [Unknown]
  - Muscle twitching [Unknown]
  - Insomnia [Unknown]
  - Prescribed underdose [Unknown]
  - Hypoxia [Unknown]
  - Postictal state [Unknown]
  - Loss of consciousness [Recovered/Resolved]
  - Influenza like illness [Unknown]
  - Stress [Unknown]
  - Humerus fracture [Unknown]

NARRATIVE: CASE EVENT DATE: 20161221
